FAERS Safety Report 5217156-3 (Version None)
Quarter: 2007Q1

REPORT INFORMATION
  Report Type: 
  Country: None (occurrence: None)
  Receive Date: 20070122
  Receipt Date: 20070122
  Transmission Date: 20070707
  Serious: Yes (Life-Threatening, Hospitalization, Disabling)
  Sender: FDA-Public Use
  Company Number: None

PATIENT
  Sex: Male
  Weight: 86.1834 kg

DRUGS (1)
  1. AMOXICILLIN [Suspect]
     Indication: TOOTH INFECTION
     Dosage: SEE IMAGE
     Route: 048
     Dates: start: 20061109, end: 20061115

REACTIONS (5)
  - FALL [None]
  - GRAND MAL CONVULSION [None]
  - HAEMATOMA [None]
  - HEAD INJURY [None]
  - JOINT DISLOCATION [None]
